FAERS Safety Report 10564620 (Version 2)
Quarter: 2014Q4

REPORT INFORMATION
  Report Type: Spontaneous
  Country: US (occurrence: US)
  Receive Date: 20141104
  Receipt Date: 20141104
  Transmission Date: 20150529
  Serious: No
  Sender: FDA-Public Use
  Company Number: US-MALLINCKRODT-T201402430

PATIENT
  Age: 62 Year
  Sex: Female

DRUGS (1)
  1. FENTANYL CITRATE. [Suspect]
     Active Substance: FENTANYL CITRATE
     Indication: PAIN
     Dosage: 400 ?G, ONE FIVE TIMES DAILY
     Route: 048
     Dates: start: 2009

REACTIONS (4)
  - Product packaging quantity issue [Unknown]
  - Product use issue [Not Recovered/Not Resolved]
  - Medication error [Unknown]
  - Drug withdrawal syndrome [Recovered/Resolved]

NARRATIVE: CASE EVENT DATE: 201406
